FAERS Safety Report 7743049 (Version 4)
Quarter: 2015Q1

REPORT INFORMATION
  Report Type: Spontaneous
  Country: US (occurrence: US)
  Receive Date: 20101229
  Receipt Date: 20150217
  Transmission Date: 20150721
  Serious: Yes (Hospitalization, Other)
  Sender: FDA-Public Use
  Company Number: US-PFIZER INC-2010178476

PATIENT
  Age: 57 Year
  Sex: Female

DRUGS (10)
  1. ISONIAZID. [Concomitant]
     Active Substance: ISONIAZID
     Dosage: 300 MG, DAILY
     Route: 048
     Dates: start: 20081021, end: 20090831
  2. IBUPROFEN. [Concomitant]
     Active Substance: IBUPROFEN
     Dosage: 800 MG 1 TABLET, EVERY 8 HOURS
     Route: 048
     Dates: start: 20090101, end: 20090831
  3. DILANTIN [Suspect]
     Active Substance: PHENYTOIN
     Dosage: 1600 MG, 1X/DAY
     Route: 048
     Dates: start: 20080208, end: 20080919
  4. DILANTIN [Suspect]
     Active Substance: PHENYTOIN
     Dosage: 800 MG, 1X/DAY
     Route: 048
     Dates: start: 20080919, end: 20090628
  5. DILANTIN [Suspect]
     Active Substance: PHENYTOIN
     Dosage: 400 MG, 1X/DAY
     Route: 048
     Dates: start: 20090628, end: 20090829
  6. LISINOPRIL. [Concomitant]
     Active Substance: LISINOPRIL
     Dosage: 20 MG, 1X/DAY
     Route: 048
     Dates: start: 20090302
  7. DILANTIN [Suspect]
     Active Substance: PHENYTOIN
     Dosage: 400 MG, 1X/DAY
     Route: 048
     Dates: start: 20071219, end: 20080208
  8. SIMVASTATIN. [Concomitant]
     Active Substance: SIMVASTATIN
     Dosage: 20 MG 1 TABLET EACH NIGHT AT BED TIME, 1X/DAY
     Route: 048
     Dates: start: 20090226
  9. TOPROL XL [Concomitant]
     Active Substance: METOPROLOL SUCCINATE
     Dosage: 50 MG, UNK
     Route: 048
     Dates: start: 20080208, end: 20090831
  10. DILANTIN [Suspect]
     Active Substance: PHENYTOIN
     Indication: SEIZURE
     Dosage: 100 MG, 1X/DAY EACH NIGHT AT BED TIME
     Route: 048
     Dates: start: 20071218, end: 20071218

REACTIONS (1)
  - Stevens-Johnson syndrome [Unknown]

NARRATIVE: CASE EVENT DATE: 20090706
